FAERS Safety Report 7141697-5 (Version None)
Quarter: 2010Q4

REPORT INFORMATION
  Report Type: 
  Country: None (occurrence: None)
  Receive Date: 20101207
  Receipt Date: 20101124
  Transmission Date: 20110411
  Serious: Yes (Hospitalization)
  Sender: FDA-Public Use
  Company Number: US-SANOFI-AVENTIS-2010SA072412

PATIENT
  Age: 86 Year
  Sex: Female
  Weight: 71.65 kg

DRUGS (21)
  1. CLOPIDOGREL BISULFATE [Suspect]
     Route: 065
     Dates: start: 20090720
  2. BLINDED THERAPY [Suspect]
     Indication: ACUTE CORONARY SYNDROME
     Route: 065
     Dates: start: 20090729, end: 20100507
  3. BLINDED THERAPY [Suspect]
     Route: 065
     Dates: start: 20100514
  4. ASPIRIN [Concomitant]
     Dates: start: 20090718
  5. TIAZAC [Concomitant]
  6. LASIX [Concomitant]
  7. MICARDIS [Concomitant]
  8. ALBUTEROL [Concomitant]
  9. SPIRIVA [Concomitant]
  10. NEXIUM [Concomitant]
  11. NOVOLIN 70/30 [Concomitant]
  12. JANUVIA [Concomitant]
  13. ZOCOR [Concomitant]
  14. LOVAZA [Concomitant]
  15. LUTEIN [Concomitant]
  16. PRENATAL VITAMINS [Concomitant]
  17. FOSINOPRIL SODIUM [Concomitant]
  18. THEO-DUR [Concomitant]
  19. POTASSIUM CHLORIDE [Concomitant]
  20. FOSAMAX [Concomitant]
  21. CALCIUM [Concomitant]

REACTIONS (1)
  - ACUTE RESPIRATORY FAILURE [None]
